FAERS Safety Report 9341436 (Version 1)
Quarter: 2013Q2

REPORT INFORMATION
  Report Type: Spontaneous
  Country: US (occurrence: US)
  Receive Date: 20130611
  Receipt Date: 20130611
  Transmission Date: 20140414
  Serious: Yes (Hospitalization)
  Sender: FDA-Public Use
  Company Number: US-AMGEN-USASP2013040439

PATIENT
  Age: 59 Year
  Sex: Female

DRUGS (14)
  1. SENSIPAR [Suspect]
     Indication: PRODUCT USED FOR UNKNOWN INDICATION
  2. NORCO [Concomitant]
  3. BISACODYL [Concomitant]
  4. SENNA                              /00142201/ [Concomitant]
  5. BACLOFEN [Concomitant]
  6. BUSPAR [Concomitant]
  7. COREG [Concomitant]
  8. ALLOPURINOL [Concomitant]
  9. COLACE [Concomitant]
  10. REMERON [Concomitant]
  11. NEURONTIN [Concomitant]
  12. LISINOPRIL [Concomitant]
  13. PLAVIX [Concomitant]
  14. CELEXA                             /00582602/ [Concomitant]

REACTIONS (2)
  - Dysphagia [Unknown]
  - Nausea [Unknown]
